FAERS Safety Report 12532817 (Version 1)
Quarter: 2016Q3

REPORT INFORMATION
  Report Type: Spontaneous
  Country: US (occurrence: US)
  Receive Date: 20160706
  Receipt Date: 20160706
  Transmission Date: 20161109
  Serious: No
  Sender: FDA-Public Use
  Company Number: US-PURDUE-USA-2015-0125755

PATIENT
  Age: 36 Year
  Sex: Female

DRUGS (1)
  1. BUTRANS [Suspect]
     Active Substance: BUPRENORPHINE
     Indication: NECK PAIN
     Dosage: 15 MCG/HR, WEEKLY
     Route: 062
     Dates: start: 201501

REACTIONS (5)
  - Vomiting [Unknown]
  - Nausea [Unknown]
  - Constipation [Unknown]
  - Application site papules [Unknown]
  - Application site pruritus [Unknown]

NARRATIVE: CASE EVENT DATE: 201505
